APPROVED DRUG PRODUCT: OCUFLOX
Active Ingredient: OFLOXACIN
Strength: 0.3%
Dosage Form/Route: SOLUTION/DROPS;OPHTHALMIC
Application: N019921 | Product #001 | TE Code: AT
Applicant: ALLERGAN INC
Approved: Jul 30, 1993 | RLD: Yes | RS: Yes | Type: RX